FAERS Safety Report 26109838 (Version 1)
Quarter: 2025Q4

REPORT INFORMATION
  Report Type: Spontaneous
  Country: US (occurrence: None)
  Receive Date: 20251128
  Receipt Date: 20251128
  Transmission Date: 20260118
  Serious: No
  Sender: FDA-CTU
  Company Number: None

PATIENT
  Sex: Female

DRUGS (1)
  1. SKYRIZI [Suspect]
     Active Substance: RISANKIZUMAB-RZAA
     Indication: Colitis ulcerative
     Dosage: 360 MG : EVERY 8 WEEKS SUBCUTANEOUS?
     Route: 058
     Dates: start: 20250219

REACTIONS (3)
  - Therapeutic product effect incomplete [None]
  - Pain [None]
  - Defaecation urgency [None]
